FAERS Safety Report 16108965 (Version 1)
Quarter: 2019Q1

REPORT INFORMATION
  Report Type: Spontaneous
  Country: US (occurrence: US)
  Receive Date: 20190323
  Receipt Date: 20190323
  Transmission Date: 20190418
  Serious: No
  Sender: FDA-Public Use
  Company Number: US-THERAPEUTICSMD-2018TMD00471

PATIENT
  Sex: Female
  Weight: 63.04 kg

DRUGS (4)
  1. CLOBETASOL [Concomitant]
     Active Substance: CLOBETASOL
  2. IMVEXXY [Suspect]
     Active Substance: ESTRADIOL
     Indication: HORMONE LEVEL ABNORMAL
  3. IMVEXXY [Suspect]
     Active Substance: ESTRADIOL
     Indication: URINARY INCONTINENCE
     Dosage: 10 ?G, 2X/WEEK BEFORE BED
     Route: 067
     Dates: start: 201809, end: 20181204
  4. UNSPECIFIED VITAMINS [Concomitant]
     Active Substance: VITAMINS

REACTIONS (3)
  - Off label use [Recovered/Resolved]
  - Urinary tract infection [Recovered/Resolved]
  - Lichen planus [Recovered/Resolved]

NARRATIVE: CASE EVENT DATE: 2018
